FAERS Safety Report 15730977 (Version 2)
Quarter: 2019Q2

REPORT INFORMATION
  Report Type: Spontaneous
  Country: DE (occurrence: DE)
  Receive Date: 20181217
  Receipt Date: 20190523
  Transmission Date: 20190711
  Serious: Yes (Life-Threatening, Hospitalization, Other)
  Sender: FDA-Public Use
  Company Number: PHHY2018DE186275

PATIENT
  Age: 66 Year
  Sex: Male
  Weight: 82 kg

DRUGS (14)
  1. COSENTYX [Suspect]
     Active Substance: SECUKINUMAB
     Indication: PSORIASIS
     Dosage: 300 MG, UNK
     Route: 058
  2. CEFTAZIDIME. [Suspect]
     Active Substance: CEFTAZIDIME
     Indication: ENDOPHTHALMITIS
     Dosage: 6 G, QD
     Route: 065
     Dates: start: 20181109, end: 201811
  3. SPIRONOLACTON [Concomitant]
     Active Substance: SPIRONOLACTONE
     Indication: PRODUCT USED FOR UNKNOWN INDICATION
     Dosage: 50 MG, UNK
     Route: 048
  4. FUROSEMID [Concomitant]
     Active Substance: FUROSEMIDE
     Indication: PRODUCT USED FOR UNKNOWN INDICATION
     Dosage: 20 MG, UNK
     Route: 048
  5. INSULIN [Concomitant]
     Active Substance: INSULIN NOS
     Indication: PRODUCT USED FOR UNKNOWN INDICATION
     Dosage: UNK
     Route: 065
  6. ALLOPURINOL. [Concomitant]
     Active Substance: ALLOPURINOL
     Indication: HYPERURICAEMIA
     Dosage: 100 MG, UNK
     Route: 048
  7. FRAGMIN P [Concomitant]
     Active Substance: DALTEPARIN SODIUM
     Indication: THROMBOSIS PROPHYLAXIS
     Dosage: 5000 IU, UNK
     Route: 065
  8. HUMIRA [Suspect]
     Active Substance: ADALIMUMAB
     Indication: PSORIASIS
     Dosage: 80 MG, UNK
     Route: 058
  9. TRANEXAMIC ACID. [Concomitant]
     Active Substance: TRANEXAMIC ACID
     Indication: PROPHYLAXIS
     Dosage: 1500 MG, QD
     Route: 048
     Dates: start: 20181119
  10. PANTOPRAZOL [Concomitant]
     Active Substance: PANTOPRAZOLE SODIUM
     Indication: OESOPHAGITIS
     Dosage: 120 MG, QD
     Route: 048
     Dates: start: 20181119
  11. PANTOPRAZOL [Concomitant]
     Active Substance: PANTOPRAZOLE SODIUM
     Indication: GASTRITIS
     Dosage: 1 OT, QD
     Route: 065
     Dates: start: 2018
  12. TRANEXAMIC ACID. [Concomitant]
     Active Substance: TRANEXAMIC ACID
     Dosage: 1 DF, QD
     Route: 042
     Dates: start: 201811, end: 201811
  13. MOVICOL [Concomitant]
     Active Substance: POLYETHYLENE GLYCOL 3350\POTASSIUM CHLORIDE\SODIUM BICARBONATE\SODIUM CHLORIDE
     Indication: CONSTIPATION PROPHYLAXIS
     Dosage: 1 OT, QD
     Route: 065
     Dates: start: 201811
  14. MONO EMBOLEX [Concomitant]
     Active Substance: CERTOPARIN SODIUM
     Indication: PRODUCT USED FOR UNKNOWN INDICATION
     Dosage: 0.3 ML, QD
     Route: 065
     Dates: start: 201811

REACTIONS (25)
  - Open angle glaucoma [Unknown]
  - Ocular hypertension [Recovering/Resolving]
  - Gastric polyps [Recovering/Resolving]
  - Eye disorder [Unknown]
  - Haemoglobin decreased [Recovering/Resolving]
  - Endophthalmitis [Recovered/Resolved with Sequelae]
  - Vitreous prolapse [Unknown]
  - Reactive gastropathy [Unknown]
  - White blood cell count decreased [Recovering/Resolving]
  - Inflammatory marker increased [Unknown]
  - Haematemesis [Unknown]
  - Erosive oesophagitis [Unknown]
  - Pancytopenia [Unknown]
  - Nausea [Unknown]
  - Ocular fistula [Unknown]
  - Haemolysis [Unknown]
  - Eye pain [Unknown]
  - Gastritis [Unknown]
  - Streptococcal infection [Unknown]
  - Intraocular pressure increased [Unknown]
  - Hyperplasia [Recovering/Resolving]
  - Platelet count decreased [Recovering/Resolving]
  - Eye infection staphylococcal [Recovering/Resolving]
  - Polyp [Unknown]
  - Hiatus hernia [Unknown]

NARRATIVE: CASE EVENT DATE: 2018
